FAERS Safety Report 15413008 (Version 3)
Quarter: 2019Q1

REPORT INFORMATION
  Report Type: Report from Study
  Country: AU (occurrence: AU)
  Receive Date: 20180921
  Receipt Date: 20190108
  Transmission Date: 20190417
  Serious: Yes (Death, Hospitalization)
  Sender: FDA-Public Use
  Company Number: AU-ACTELION-A-CH2018-179023

PATIENT
  Age: 51 Year
  Sex: Female
  Weight: 58 kg

DRUGS (21)
  1. ENDONE [Concomitant]
     Active Substance: OXYCODONE HYDROCHLORIDE
     Dosage: 5 MG, PRN
     Dates: end: 20181214
  2. SPIRONOLACTONE. [Concomitant]
     Active Substance: SPIRONOLACTONE
     Dosage: 50 MG, BID
     Dates: end: 20181214
  3. LOPERAMIDE [Concomitant]
     Active Substance: LOPERAMIDE
     Dosage: 2 MG, PRN
     Dates: end: 20181214
  4. PARACETAMOL CODEINE [Concomitant]
     Active Substance: ACETAMINOPHEN\CODEINE PHOSPHATE
     Dosage: 8/500 MG, PRN
     Dates: end: 20181214
  5. BUMETANIDE. [Concomitant]
     Active Substance: BUMETANIDE
     Dosage: 4 MG, QD
  6. DOCUSATE SODIUM + SENNA [Concomitant]
     Active Substance: DOCUSATE SODIUM\SENNOSIDE A\SENNOSIDE B
     Dosage: 50/8 MG, QD
  7. HYDROCHLOROTHIAZIDE. [Concomitant]
     Active Substance: HYDROCHLOROTHIAZIDE
     Dosage: 12.5 MG, QD
  8. VELETRI [Suspect]
     Active Substance: EPOPROSTENOL
     Indication: PULMONARY HYPERTENSION
     Dosage: UNK
     Route: 042
     Dates: end: 20181214
  9. BOSENTAN. [Suspect]
     Active Substance: BOSENTAN
     Indication: PULMONARY HYPERTENSION
     Dosage: 125 MG, BID
     Route: 048
     Dates: start: 20100626, end: 20181214
  10. CHOLECALCIFEROL [Concomitant]
     Active Substance: CHOLECALCIFEROL
     Dosage: 25 MCG, QD
  11. SUSTAGEN [Concomitant]
     Dosage: 250 ML, QD
  12. MAGNESIUM ASPARTATE [Concomitant]
     Active Substance: MAGNESIUM ASPARTATE
     Dosage: 500 MG, BID
     Dates: end: 20181214
  13. ONDANSETRON [Concomitant]
     Active Substance: ONDANSETRON
     Dosage: 4 MG, PRN
     Dates: end: 20181214
  14. FRUSEMIDE [Concomitant]
     Active Substance: FUROSEMIDE
     Dosage: 40 MG, TID
  15. PARACETAMOL [Concomitant]
     Active Substance: ACETAMINOPHEN
     Dosage: 500 MG, PRN
     Dates: end: 20181214
  16. SILDENAFIL. [Suspect]
     Active Substance: SILDENAFIL
     Indication: PULMONARY HYPERTENSION
     Dosage: 40 MG, TID
     Route: 048
     Dates: start: 20100317, end: 20181214
  17. METOCLOPRAMIDE. [Concomitant]
     Active Substance: METOCLOPRAMIDE
     Dosage: 10 MG, PRN
     Dates: end: 20181214
  18. POTASSIUM CHLORIDE. [Concomitant]
     Active Substance: POTASSIUM CHLORIDE
     Dosage: 2400 MG, TID
  19. ACETAZOLAMIDE. [Concomitant]
     Active Substance: ACETAZOLAMIDE
     Dosage: 250 MG, BID
  20. CALCIUM CARBONATE. [Concomitant]
     Active Substance: CALCIUM CARBONATE
     Dosage: 600 MG, QD
  21. SPIRONOLACTONE. [Concomitant]
     Active Substance: SPIRONOLACTONE
     Dosage: 25 MG, QD

REACTIONS (12)
  - Limb injury [Unknown]
  - Lethargy [Fatal]
  - Right ventricular failure [Fatal]
  - Disease progression [Fatal]
  - Fluid overload [Unknown]
  - Cardiac failure [Unknown]
  - Hepatic cirrhosis [Fatal]
  - Pulmonary hypertension [Fatal]
  - Cardiac cirrhosis [Fatal]
  - Ascites [Fatal]
  - Electrolyte imbalance [Unknown]
  - Dyspnoea [Fatal]

NARRATIVE: CASE EVENT DATE: 20181121
